FAERS Safety Report 14648539 (Version 1)
Quarter: 2018Q1

REPORT INFORMATION
  Report Type: Report from Study
  Country: NZ (occurrence: NZ)
  Receive Date: 20180316
  Receipt Date: 20180316
  Transmission Date: 20180509
  Serious: Yes (Other)
  Sender: FDA-Public Use
  Company Number: NZ-MYLANLABS-2018M1008079

PATIENT
  Age: 52 Year
  Sex: Male

DRUGS (6)
  1. CLOZARIL [Suspect]
     Active Substance: CLOZAPINE
     Dosage: UNK
     Route: 048
     Dates: start: 20131213, end: 20180112
  2. LAMOTRIGINE. [Concomitant]
     Active Substance: LAMOTRIGINE
     Indication: PRODUCT USED FOR UNKNOWN INDICATION
     Dosage: UNK
  3. AMISULPRIDE [Concomitant]
     Active Substance: AMISULPRIDE
     Indication: PRODUCT USED FOR UNKNOWN INDICATION
     Dosage: UNK
  4. LITHIUM. [Concomitant]
     Active Substance: LITHIUM
     Indication: PRODUCT USED FOR UNKNOWN INDICATION
     Dosage: UNK
  5. CLOZARIL [Suspect]
     Active Substance: CLOZAPINE
     Dosage: UNK
     Route: 048
     Dates: start: 20180205
  6. CLOZARIL [Suspect]
     Active Substance: CLOZAPINE
     Indication: SCHIZOPHRENIA
     Dosage: UNK
     Route: 048
     Dates: start: 20021022

REACTIONS (14)
  - Drug ineffective [Unknown]
  - Apathy [Unknown]
  - Blood albumin decreased [Recovering/Resolving]
  - C-reactive protein increased [Unknown]
  - Lipids increased [Unknown]
  - Persistent depressive disorder [Unknown]
  - Blood glucose abnormal [Unknown]
  - Obesity [Unknown]
  - Platelet count decreased [Recovering/Resolving]
  - Sedation [Unknown]
  - Blood creatinine increased [Not Recovered/Not Resolved]
  - Hypersomnia [Unknown]
  - Disturbance in attention [Unknown]
  - Alanine aminotransferase increased [Unknown]

NARRATIVE: CASE EVENT DATE: 20180104
